FAERS Safety Report 10217021 (Version 4)
Quarter: 2014Q3

REPORT INFORMATION
  Report Type: Report from Study
  Country: DE (occurrence: DE)
  Receive Date: 20140604
  Receipt Date: 20140806
  Transmission Date: 20150326
  Serious: Yes (Hospitalization, Other)
  Sender: FDA-Public Use
  Company Number: PHHO2011DE10812

PATIENT

DRUGS (9)
  1. COMPARATOR ENALAPRIL [Suspect]
     Active Substance: ENALAPRIL
     Indication: CARDIAC FAILURE CHRONIC
     Dosage: UNK
     Route: 048
     Dates: start: 20110531, end: 20110616
  2. RAMIPRIL. [Concomitant]
     Active Substance: RAMIPRIL
     Indication: CORONARY ARTERY DISEASE
     Dosage: UNK
     Dates: start: 20090315
  3. PROCORALAN [Concomitant]
     Active Substance: IVABRADINE
     Indication: CARDIOMYOPATHY
     Dosage: UNK
     Dates: start: 201001
  4. PLAVIX [Suspect]
     Active Substance: CLOPIDOGREL BISULFATE
     Indication: CORONARY ARTERY DISEASE
     Dosage: 75 MG, QD
     Dates: start: 201010
  5. DIGIMERCK [Concomitant]
     Active Substance: DIGITOXIN
     Indication: CARDIOMYOPATHY
     Dosage: UNK
     Dates: start: 20090315
  6. ACETYLSALICYLIC ACID [Suspect]
     Active Substance: ASPIRIN
     Indication: CORONARY ARTERY DISEASE
     Dosage: 200 MG, QD
     Dates: start: 20090315
  7. INSPRA [Concomitant]
     Active Substance: EPLERENONE
     Indication: CARDIOMYOPATHY
     Dosage: UNK
     Dates: start: 201001
  8. BISOPROLOL [Concomitant]
     Active Substance: BISOPROLOL
     Indication: CORONARY ARTERY DISEASE
     Dosage: UNK
     Dates: start: 20090315
  9. TORASEMIDE [Concomitant]
     Active Substance: TORSEMIDE
     Indication: CARDIOMYOPATHY
     Dosage: UNK
     Dates: start: 20090315

REACTIONS (3)
  - Cerebral haemorrhage [Not Recovered/Not Resolved]
  - Syncope [Recovered/Resolved]
  - Subarachnoid haemorrhage [Recovering/Resolving]

NARRATIVE: CASE EVENT DATE: 20110618
